FAERS Safety Report 4518354-4 (Version None)
Quarter: 2004Q4

REPORT INFORMATION
  Report Type: 
  Country: None (occurrence: None)
  Receive Date: 20041202
  Receipt Date: 20041122
  Transmission Date: 20050328
  Serious: No
  Sender: FDA-Public Use
  Company Number: TAP2004Q01520

PATIENT
  Age: 69 Year
  Sex: Female

DRUGS (6)
  1. PREVPAC [Suspect]
     Indication: HELICOBACTER INFECTION
     Dosage: 0.5 CARD, 2 IN 1 D, PER ORAL
     Route: 048
     Dates: start: 20041020, end: 20041022
  2. GLUCOPHAGE [Concomitant]
  3. GLUCOTOROL (GLIPIZIDE) [Concomitant]
  4. ALTACE [Concomitant]
  5. NORVASC [Concomitant]
  6. TOPROL-XL [Concomitant]

REACTIONS (4)
  - EYE PAIN [None]
  - HEADACHE [None]
  - VISION BLURRED [None]
  - VOMITING [None]
